FAERS Safety Report 5967875-6 (Version None)
Quarter: 2008Q4

REPORT INFORMATION
  Report Type: 
  Country: None (occurrence: None)
  Receive Date: 20081126
  Receipt Date: 20081119
  Transmission Date: 20090506
  Serious: Yes (Other)
  Sender: FDA-Public Use
  Company Number: US-BIOGENIDEC-2008BI021748

PATIENT
  Age: 43 Year
  Sex: Female
  Weight: 48 kg

DRUGS (1)
  1. TYSABRI [Suspect]
     Indication: MULTIPLE SCLEROSIS
     Route: 042
     Dates: start: 20080530, end: 20080826

REACTIONS (6)
  - FATIGUE [None]
  - FLUSHING [None]
  - JUVENILE MELANOMA BENIGN [None]
  - MALIGNANT MELANOMA [None]
  - ORAL HERPES [None]
  - PYREXIA [None]
